FAERS Safety Report 9036427 (Version 1)
Quarter: 2013Q1

REPORT INFORMATION
  Report Type: Report from Study
  Country: US (occurrence: US)
  Receive Date: 20130129
  Receipt Date: 20130129
  Transmission Date: 20140127
  Serious: No
  Sender: FDA-Public Use
  Company Number: US-ABBOTT-11P-163-0887793-00

PATIENT
  Age: 75 Year
  Sex: Female

DRUGS (7)
  1. HUMIRA 40 MG/0.8 ML PEN [Suspect]
     Indication: PSORIASIS
     Dates: start: 201109
  2. DOXEPIN [Suspect]
     Indication: PRURITUS
  3. BUSPIRONE [Concomitant]
     Indication: PRODUCT USED FOR UNKNOWN INDICATION
  4. DIOVAN [Concomitant]
     Indication: HYPERTENSION
  5. METHADONE [Concomitant]
     Indication: ARTHRALGIA
  6. AMITRIPTYLINE [Concomitant]
     Indication: INSOMNIA
     Dosage: AT BEDTIME
  7. HALOPERIDOL [Concomitant]
     Indication: PRODUCT USED FOR UNKNOWN INDICATION

REACTIONS (7)
  - Pruritus [Not Recovered/Not Resolved]
  - Psoriasis [Recovering/Resolving]
  - Pain [Unknown]
  - Sleep disorder [Unknown]
  - Oedema peripheral [Unknown]
  - Somnolence [Unknown]
  - Injection site pain [Recovering/Resolving]
